FAERS Safety Report 7719391-9 (Version None)
Quarter: 2011Q3

REPORT INFORMATION
  Report Type: 
  Country: None (occurrence: None)
  Receive Date: 20110830
  Receipt Date: 20110826
  Transmission Date: 20111222
  Serious: Yes (Other)
  Sender: FDA-Public Use
  Company Number: JP-B.I. PHARMACEUTICALS,INC./RIDGEFIELD-2011-BP-20798NB

PATIENT
  Age: 86 Year

DRUGS (5)
  1. SPIRIVA [Concomitant]
  2. ZOLPIDEM [Concomitant]
     Dosage: NR
     Route: 065
  3. PRADAXA [Suspect]
     Dosage: 150 MG
     Route: 048
  4. LEVOTHYROXINE SODIUM [Concomitant]
     Dosage: NR
     Route: 065
  5. CLARITHROMYCIN [Concomitant]
     Dosage: NR
     Route: 065

REACTIONS (2)
  - CEREBRAL INFARCTION [None]
  - ACTIVATED PARTIAL THROMBOPLASTIN TIME PROLONGED [None]
